FAERS Safety Report 5259858-9 (Version None)
Quarter: 2007Q1

REPORT INFORMATION
  Report Type: 
  Country: None (occurrence: None)
  Receive Date: 20070309
  Receipt Date: 20070302
  Transmission Date: 20070707
  Serious: Yes (Other)
  Sender: FDA-Public Use
  Company Number: FR-AVENTIS-200710790FR

PATIENT
  Age: 44 Year
  Sex: Female

DRUGS (1)
  1. FEXOFENADINE HCL [Suspect]
     Route: 048
     Dates: start: 20070228, end: 20070301

REACTIONS (2)
  - DRY MOUTH [None]
  - SYNCOPE [None]
